FAERS Safety Report 4358303-5 (Version None)
Quarter: 2004Q2

REPORT INFORMATION
  Report Type: 
  Country: None (occurrence: None)
  Receive Date: 20040511
  Receipt Date: 20040511
  Transmission Date: 20050107
  Serious: Yes (Life-Threatening, Hospitalization)
  Sender: FDA-Public Use
  Company Number: None

PATIENT
  Age: 55 Year
  Sex: Female
  Weight: 50.3 kg

DRUGS (26)
  1. COUMADIN [Suspect]
  2. OMEPRAZOLE 20 MG CAP [Suspect]
  3. LABETALOL HCL [Concomitant]
  4. LISINOPRIL [Concomitant]
  5. HYDROCORTISONE [Concomitant]
  6. HYDROXYCHLOROQUINE SULFATE [Concomitant]
  7. ACYCLOVIR [Concomitant]
  8. PHENYTOIN [Concomitant]
  9. FIORICET [Concomitant]
  10. ACETAMINOPHEN W/ CODEINE [Concomitant]
  11. PREDNISONE [Concomitant]
  12. CALCIUM CARBONATE [Concomitant]
  13. PHENOBARBITAL TAB [Concomitant]
  14. DIGOXIN [Concomitant]
  15. FERROUS SULFATE TAB [Concomitant]
  16. OSCAL-D [Concomitant]
  17. AMOXILLIN [Concomitant]
  18. .. [Concomitant]
  19. IMIPRAMINE [Concomitant]
  20. TETANUS AND DIPHTHERIA TOXIDS [Concomitant]
  21. PHENOBARBITAL TAB [Concomitant]
  22. LISINOPRIL [Concomitant]
  23. LABETALOL HCL [Concomitant]
  24. OMEPRAZOLE [Concomitant]
  25. WARFARIN SODIUM [Concomitant]
  26. LANSOPRAZOLE [Concomitant]

REACTIONS (3)
  - FAECES DISCOLOURED [None]
  - GASTROINTESTINAL HAEMORRHAGE [None]
  - RECTAL HAEMORRHAGE [None]
